FAERS Safety Report 4785365-3 (Version None)
Quarter: 2005Q4

REPORT INFORMATION
  Report Type: 
  Country: None (occurrence: None)
  Receive Date: 20051003
  Receipt Date: 20050831
  Transmission Date: 20060501
  Serious: Yes (Hospitalization)
  Sender: FDA-Public Use
  Company Number: FR-SOLVAY-00205002789

PATIENT
  Age: 19728 Day
  Sex: Female

DRUGS (2)
  1. UTROGESTAN [Suspect]
     Indication: MENOPAUSAL SYMPTOMS
     Dosage: DAILY DOSE: 200 MILLIGRAM(S)
     Route: 048
     Dates: start: 20050303, end: 20050308
  2. ESTREVA [Suspect]
     Indication: MENOPAUSAL SYMPTOMS
     Dosage: DAILY DOSE: 1.25 GRAM(S)
     Route: 062
     Dates: start: 20050303, end: 20050308

REACTIONS (2)
  - INTESTINAL ISCHAEMIA [None]
  - MYOCARDIAL INFARCTION [None]
